FAERS Safety Report 11215150 (Version 1)
Quarter: 2015Q2

REPORT INFORMATION
  Report Type: Spontaneous
  Country: JP (occurrence: None)
  Receive Date: 20150622
  Receipt Date: 20150622
  Transmission Date: 20150821
  Serious: Yes (Life-Threatening)
  Sender: FDA-Public Use
  Company Number: 2015FE01522

PATIENT
  Age: 71 Year
  Sex: Male
  Weight: 57 kg

DRUGS (4)
  1. CASODEX [Concomitant]
     Active Substance: BICALUTAMIDE
  2. DISTILLED WATER (WATER FOR INJECTION) [Suspect]
     Active Substance: WATER
     Indication: PRODUCT USED FOR UNKNOWN INDICATION
     Dosage: 4.2 ML, ONCE/SINGLE
  3. PLETAAL (CILOSTAZOL) [Concomitant]
  4. GONAX (DEGARELIX) POWDER AND SOLVENT FOR SOLUTION FOR INJECTION [Suspect]
     Active Substance: DEGARELIX
     Indication: PROSTATE CANCER
     Route: 058
     Dates: start: 20140805, end: 20141202

REACTIONS (3)
  - Prescribed underdose [None]
  - Shock [None]
  - Injection site pain [None]

NARRATIVE: CASE EVENT DATE: 20140805
